FAERS Safety Report 20570635 (Version 1)
Quarter: 2022Q1

REPORT INFORMATION
  Report Type: Spontaneous
  Country: NO (occurrence: NO)
  Receive Date: 20220309
  Receipt Date: 20220309
  Transmission Date: 20220423
  Serious: Yes (Other)
  Sender: FDA-Public Use
  Company Number: None

PATIENT
  Age: 36 Year
  Sex: Female

DRUGS (2)
  1. PREDNISOLONE [Suspect]
     Active Substance: PREDNISOLONE
     Indication: Intervertebral disc protrusion
     Dosage: FORM STRENGTH: 20MG; UNIT DOSE: 45MG
     Route: 048
     Dates: start: 20211224
  2. PREDNISOLONE [Suspect]
     Active Substance: PREDNISOLONE
     Indication: Pain

REACTIONS (4)
  - Haematochezia [Unknown]
  - Constipation [Unknown]
  - Mucous stools [Unknown]
  - Abnormal faeces [Unknown]

NARRATIVE: CASE EVENT DATE: 20211228
